FAERS Safety Report 12613455 (Version 1)
Quarter: 2016Q3

REPORT INFORMATION
  Report Type: Spontaneous
  Country: US (occurrence: None)
  Receive Date: 20160801
  Receipt Date: 20160801
  Transmission Date: 20161109
  Serious: Yes (Disabling)
  Sender: FDA-Public Use
  Company Number: None

PATIENT
  Age: 26 Year
  Sex: Male
  Weight: 61.24 kg

DRUGS (1)
  1. ISOTRETINOIN [Suspect]
     Active Substance: ISOTRETINOIN
     Indication: ACNE
     Route: 048

REACTIONS (5)
  - Musculoskeletal pain [None]
  - Spinal disorder [None]
  - Bone disorder [None]
  - Epistaxis [None]
  - Impaired healing [None]

NARRATIVE: CASE EVENT DATE: 20160725
